FAERS Safety Report 5223735-X (Version None)
Quarter: 2007Q1

REPORT INFORMATION
  Report Type: 
  Country: None (occurrence: None)
  Receive Date: 20070130
  Receipt Date: 20070119
  Transmission Date: 20070707
  Serious: Yes (Hospitalization)
  Sender: FDA-Public Use
  Company Number: PHBS2007SE01193

PATIENT
  Age: 25 Year
  Sex: Male

DRUGS (1)
  1. RITALIN [Suspect]
     Indication: ATTENTION DEFICIT/HYPERACTIVITY DISORDER
     Dosage: 100 MG/D
     Route: 048

REACTIONS (4)
  - ACCOMMODATION DISORDER [None]
  - NASOPHARYNGITIS [None]
  - PYREXIA [None]
  - VISION BLURRED [None]
